FAERS Safety Report 9406696 (Version 1)
Quarter: 2013Q3

REPORT INFORMATION
  Report Type: Spontaneous
  Country: US (occurrence: US)
  Receive Date: 20130718
  Receipt Date: 20130718
  Transmission Date: 20140515
  Serious: Yes (Hospitalization)
  Sender: FDA-Public Use
  Company Number: US-SANOFI-AVENTIS-2013SA071972

PATIENT
  Age: 62 Year
  Sex: Female

DRUGS (1)
  1. APIDRA [Suspect]
     Route: 065

REACTIONS (2)
  - Pain [Recovered/Resolved]
  - Blood potassium increased [Recovered/Resolved]
